FAERS Safety Report 26130285 (Version 1)
Quarter: 2025Q4

REPORT INFORMATION
  Report Type: Spontaneous
  Country: US (occurrence: US)
  Receive Date: 20251208
  Receipt Date: 20251208
  Transmission Date: 20260117
  Serious: No
  Sender: BRISTOL-MYERS SQUIBB COMPANY
  Company Number: US-BRISTOL-MYERS SQUIBB COMPANY-2025-164658

PATIENT
  Age: 73 Year
  Weight: 63.96 kg

DRUGS (5)
  1. ORENCIA [Suspect]
     Active Substance: ABATACEPT
     Indication: Rheumatoid arthritis
     Route: 042
  2. ATORVASTATIN [Concomitant]
     Active Substance: ATORVASTATIN
     Indication: Product used for unknown indication
  3. BENAZEPRIL [Concomitant]
     Active Substance: BENAZEPRIL HYDROCHLORIDE
     Indication: Product used for unknown indication
  4. EZETIMIBE [Concomitant]
     Active Substance: EZETIMIBE
     Indication: Product used for unknown indication
  5. POTASSIUM CHLORIDE [Concomitant]
     Active Substance: POTASSIUM CHLORIDE
     Indication: Product used for unknown indication

REACTIONS (8)
  - Asthma [Unknown]
  - Peripheral swelling [Unknown]
  - Paraesthesia [Unknown]
  - Constipation [Unknown]
  - Arthralgia [Unknown]
  - Back pain [Unknown]
  - Spondylolisthesis [Unknown]
  - Pain in extremity [Unknown]

NARRATIVE: CASE EVENT DATE: 20230426
